APPROVED DRUG PRODUCT: LIDOCAINE
Active Ingredient: LIDOCAINE
Strength: 5%
Dosage Form/Route: OINTMENT;TOPICAL
Application: A210958 | Product #001 | TE Code: AT
Applicant: STRIDES PHARMA GLOBAL PTE LTD
Approved: Dec 11, 2018 | RLD: No | RS: No | Type: RX